FAERS Safety Report 5258942-3 (Version None)
Quarter: 2007Q1

REPORT INFORMATION
  Report Type: 
  Country: None (occurrence: None)
  Receive Date: 20070308
  Receipt Date: 20070216
  Transmission Date: 20070707
  Serious: No
  Sender: FDA-Public Use
  Company Number: TPA2007A00406

PATIENT
  Age: 48 Year
  Sex: Female
  Weight: 62.5964 kg

DRUGS (5)
  1. ROZEREM [Suspect]
     Indication: INSOMNIA
     Dosage: 8 MG, HS, PER ORAL; 2 MG, 1/4 TABLET, HS, PER ORAL
     Route: 048
     Dates: start: 20070202
  2. ROZEREM [Suspect]
     Indication: INSOMNIA
     Dosage: 8 MG, HS, PER ORAL; 2 MG, 1/4 TABLET, HS, PER ORAL
     Route: 048
     Dates: start: 20070214
  3. PENICILLIN-VK [Concomitant]
  4. LAMICTAL [Concomitant]
  5. RISPERIDONE [Concomitant]

REACTIONS (3)
  - DIZZINESS [None]
  - TINNITUS [None]
  - VERTIGO [None]
